FAERS Safety Report 25171357 (Version 1)
Quarter: 2025Q2

REPORT INFORMATION
  Report Type: Spontaneous
  Country: US (occurrence: US)
  Receive Date: 20250408
  Receipt Date: 20250408
  Transmission Date: 20250716
  Serious: No
  Sender: DECIPHERA PHARMACEUTICALS
  Company Number: US-DECIPHERA PHARMACEUTICALS LLC-2025US000283

PATIENT
  Sex: Male

DRUGS (2)
  1. QINLOCK [Suspect]
     Active Substance: RIPRETINIB
     Indication: Gastrointestinal stromal tumour
  2. QINLOCK [Suspect]
     Active Substance: RIPRETINIB
     Indication: Metastases to liver

REACTIONS (2)
  - General physical health deterioration [Unknown]
  - Drug ineffective [Unknown]
